FAERS Safety Report 8901729 (Version 1)
Quarter: 2012Q4

REPORT INFORMATION
  Report Type: Spontaneous
  Country: CA (occurrence: None)
  Receive Date: 20121101
  Receipt Date: 20121101
  Transmission Date: 20130627
  Serious: Yes (Other)
  Sender: FDA-Public Use
  Company Number: FK201203197

PATIENT
  Age: 53 Year
  Sex: Female
  Weight: 53.98 kg

DRUGS (9)
  1. VANCOMYCIN [Suspect]
     Indication: PRODUCT USED FOR UNKNOWN INDICATION
     Dosage: 1 every 24 hours (not otherwise specified)
     Route: 042
  2. RIFAMPICIN [Suspect]
     Indication: PRODUCT USED FOR UNKNOWN INDICATION
  3. AMILORIDE (AMILORIDE HYDROCHLORIDE) [Concomitant]
  4. CHLORTHALIDONE (CHLORTHALIDONE) [Concomitant]
  5. K-DUR (POTASSIUYM CHLORIDE) [Concomitant]
  6. LEFLUNOMIDE (LEFLUNOMIDE) [Concomitant]
  7. OMEPRAZOLE (OMEPRAZOLE) [Concomitant]
  8. PANTOPRAZOLE (PANTOPRAZOLE) [Concomitant]
  9. PREDNISONE (PREDNISONE) [Concomitant]

REACTIONS (2)
  - Leukopenia [None]
  - Neutropenia [None]
